FAERS Safety Report 5489869-X (Version None)
Quarter: 2007Q4

REPORT INFORMATION
  Report Type: 
  Country: None (occurrence: None)
  Receive Date: 20071018
  Receipt Date: 20071012
  Transmission Date: 20080405
  Serious: Yes (Other)
  Sender: FDA-Public Use
  Company Number: CA-ASTRAZENECA-2007UW23991

PATIENT
  Age: 52 Year
  Sex: Female

DRUGS (11)
  1. SEROQUEL [Suspect]
     Dosage: 1 DAILY
     Route: 048
  2. RISPERDAL [Suspect]
     Dosage: 1 DAILY
  3. APO-BENZTROPINE [Concomitant]
  4. EFFEXOR XR [Concomitant]
  5. ELTROXIN [Concomitant]
  6. NOVO-GABAPENTIN [Concomitant]
  7. NOVO-TRAZODONE [Concomitant]
  8. PAXIL [Concomitant]
  9. PMS CLONAZEPAM [Concomitant]
  10. TOPAMAX [Concomitant]
  11. TIAPROFENIC ACID [Concomitant]

REACTIONS (4)
  - BRUXISM [None]
  - DYSKINESIA [None]
  - LIP DISORDER [None]
  - TARDIVE DYSKINESIA [None]
